FAERS Safety Report 6637538-2 (Version None)
Quarter: 2010Q1

REPORT INFORMATION
  Report Type: 
  Country: None (occurrence: None)
  Receive Date: 20100311
  Receipt Date: 20100225
  Transmission Date: 20100710
  Serious: Yes (Other)
  Sender: FDA-Public Use
  Company Number: 516361

PATIENT
  Age: 16 Year
  Sex: Male
  Weight: 56 kg

DRUGS (61)
  1. VINCRISTINE SULFATE [Suspect]
     Indication: DRUG USE FOR UNKNOWN INDICATION
     Dosage: 2.0 MG, CYCLICAL, INTRAVENOUS
     Route: 042
  2. ACETAMINOPHEN [Concomitant]
  3. ALLOPURINOL [Concomitant]
  4. ALTEPLASE [Concomitant]
  5. AMOXICILLIN W/CLAVULANATE POTASSIUM [Concomitant]
  6. BETAMETHASONE [Concomitant]
  7. CEFADROXIL [Concomitant]
  8. CEFPROZIL [Concomitant]
  9. CLARITHROMYCIN [Concomitant]
  10. CLOXACILLIN [Concomitant]
  11. CODEINE SULFATE [Concomitant]
  12. CYCLOBENZAPRINE [Concomitant]
  13. CYTARABINE [Concomitant]
  14. DEXAMETHASONE [Concomitant]
  15. DIMENHYDRINATE [Concomitant]
  16. DIPHENHYDRAMINE HYDROCHLORIDE [Concomitant]
  17. DOCUSATE SODIUM [Concomitant]
  18. DOXORUBICIN HCL [Concomitant]
  19. FENTANYL CITRATE [Concomitant]
  20. FLUCONAZOLE [Concomitant]
  21. FUROSEMIDE [Concomitant]
  22. FUSIDIC ACID [Concomitant]
  23. HEPARIN SODIUM [Concomitant]
  24. HYDROCORTISONE [Concomitant]
  25. HYDROMORPHONE HCL [Concomitant]
  26. HYDROXYZINE [Concomitant]
  27. ELSPAR [Concomitant]
  28. LANSOPRAZOLE [Concomitant]
  29. LEUCOVORIN CALCIUM [Concomitant]
  30. LIDOCAINE [Concomitant]
  31. LORAZEPAM [Concomitant]
  32. MERCAPTOPURINE [Concomitant]
  33. METHOTREXATE [Concomitant]
  34. METHYLPREDNISOLONE SODIUM SUCCINATE [Concomitant]
  35. METOCLOPRAMIDE [Concomitant]
  36. MIDAZOLAM HCL [Concomitant]
  37. MINERAL OIL EMULSION [Concomitant]
  38. MORPHINE SULFATE [Concomitant]
  39. MORPHINE [Concomitant]
  40. NALOXONE [Concomitant]
  41. NAPROXEN [Concomitant]
  42. NYSTATIN [Concomitant]
  43. ONDANSETRON [Concomitant]
  44. PANTOPRAZOLE [Concomitant]
  45. PENTAMIDINE ISETHIONATE [Concomitant]
  46. PHYTONADIONE [Concomitant]
  47. PIPERACILLIN SODIUM W/TAZOBACTAM SODIUM [Concomitant]
  48. POTASSIUM CHLORIDE [Concomitant]
  49. PREDNISONE TAB [Concomitant]
  50. PRILOCAINE HYDROCHLORIDE [Concomitant]
  51. PYRIDOXINE [Concomitant]
  52. RANITIDINE [Concomitant]
  53. SALBUTAMOL [Concomitant]
  54. SUCRALFATE [Concomitant]
  55. THIAMINE HYDROCHLORIDE [Concomitant]
  56. TIMENTIN [Concomitant]
  57. TOBRAMYCIN [Concomitant]
  58. TPN ELECTROLYTES [Concomitant]
  59. TRIMETHOPRIM + SULFAMETHOXAZOLE [Concomitant]
  60. VANCOMYCIN HYDROCHLORIDE [Concomitant]
  61. ZINECARD [Concomitant]

REACTIONS (9)
  - BLOOD OSMOLARITY INCREASED [None]
  - BLOOD POTASSIUM DECREASED [None]
  - BLOOD UREA DECREASED [None]
  - BLOOD UREA INCREASED [None]
  - BLOOD URIC ACID DECREASED [None]
  - BLOOD URIC ACID INCREASED [None]
  - CREATININE URINE INCREASED [None]
  - INAPPROPRIATE ANTIDIURETIC HORMONE SECRETION [None]
  - URINE CHLORIDE DECREASED [None]
